FAERS Safety Report 7908981-6 (Version None)
Quarter: 2011Q4

REPORT INFORMATION
  Report Type: 
  Country: None (occurrence: None)
  Receive Date: 20111111
  Receipt Date: 20111028
  Transmission Date: 20120403
  Serious: Yes (Other)
  Sender: FDA-Public Use
  Company Number: PHHY2011AU96173

PATIENT
  Age: 50 Year
  Sex: Female

DRUGS (15)
  1. TERIPARATIDE [Concomitant]
     Dosage: UNK UKN, UNK
  2. METHYLPREDNISOLONE [Concomitant]
     Dosage: UNK UKN, UNK
  3. CALCITRIOL [Concomitant]
     Dosage: TWICE WEEKLY, UNK
  4. CALCIUM CARBONATE [Concomitant]
     Dosage: 800 MG, 1 TABLET DAILY, UNK
  5. CYCLOSPORINE [Suspect]
     Indication: RENAL TRANSPLANT
     Dosage: UNK UKN, UNK
  6. OESTRADIOL [Concomitant]
     Dosage: UNK UKN, UNK
  7. MYCOPHENOLATE MOFETIL [Concomitant]
     Indication: RENAL TRANSPLANT
     Dosage: UNK UKN, UNK
  8. PREDNISONE TAB [Concomitant]
     Indication: RENAL TRANSPLANT
     Dosage: UNK UKN, UNK
  9. CALCIUM CARBONATE [Concomitant]
     Dosage: 600 MG, DAILY, UNK
  10. NORETHISTERONE [Concomitant]
     Dosage: UNK UKN, UNK
  11. PREDNISONE TAB [Concomitant]
     Route: 048
  12. TACROLIMUS [Concomitant]
     Dosage: UNK UKN, UNK
  13. PAMIDRONATE DISODIUM [Concomitant]
     Indication: HYPERCALCAEMIA
     Dosage: 30-60 MG, UNK
  14. CALCITRIOL [Concomitant]
     Dosage: 0.5 UG, UNK
  15. ALENDRONATE SODIUM [Concomitant]
     Dosage: 70 MG WEEKLY, UNK

REACTIONS (18)
  - FEMORAL NECK FRACTURE [None]
  - BLOOD PARATHYROID HORMONE DECREASED [None]
  - BLOOD CREATININE INCREASED [None]
  - PARATHYROID GLAND ENLARGEMENT [None]
  - PUBIS FRACTURE [None]
  - DIABETES MELLITUS [None]
  - PATHOLOGICAL FRACTURE [None]
  - STRESS FRACTURE [None]
  - FALL [None]
  - LOW TURNOVER OSTEOPATHY [None]
  - FEMUR FRACTURE [None]
  - PELVIC FRACTURE [None]
  - OSTEOSCLEROSIS [None]
  - KIDNEY TRANSPLANT REJECTION [None]
  - HYPERCALCAEMIA [None]
  - N-TELOPEPTIDE URINE DECREASED [None]
  - FRACTURE NONUNION [None]
  - TRAUMATIC FRACTURE [None]
